FAERS Safety Report 5120540-X (Version None)
Quarter: 2006Q4

REPORT INFORMATION
  Report Type: 
  Country: None (occurrence: None)
  Receive Date: 20061004
  Receipt Date: 20060922
  Transmission Date: 20070319
  Serious: Yes (Hospitalization)
  Sender: FDA-Public Use
  Company Number: ES-ROCHE-464641

PATIENT
  Age: 34 Year
  Sex: Male

DRUGS (4)
  1. PEGASYS [Suspect]
     Dosage: FORM REPORTED AS PREFILLED SYRINGE.
     Route: 058
     Dates: start: 19980615, end: 20060729
  2. COPEGUS [Suspect]
     Dosage: FORM REPORTED AS FILM-COATED TAB. DOSAGE REGIMEN REPORTED AS UNKNOWN/DAY.
     Route: 048
     Dates: start: 19980615, end: 20060729
  3. ATENOLOL [Concomitant]
     Route: 048
     Dates: end: 20060729
  4. METHADONE HCL [Concomitant]
     Dosage: THERAPY DATES REPORTED AS LONG TERM.

REACTIONS (2)
  - HAEMOPTYSIS [None]
  - LUNG INFILTRATION [None]
